FAERS Safety Report 9926468 (Version 1)
Quarter: 2014Q1

REPORT INFORMATION
  Report Type: Spontaneous
  Country: US (occurrence: US)
  Receive Date: 20140226
  Receipt Date: 20140226
  Transmission Date: 20141002
  Serious: No
  Sender: FDA-Public Use
  Company Number: US-AMGEN-USASP2013070440

PATIENT
  Age: 84 Year
  Sex: Female
  Weight: 72.56 kg

DRUGS (7)
  1. ENBREL [Suspect]
     Indication: PRODUCT USED FOR UNKNOWN INDICATION
     Dosage: 50 MG, QWK
     Route: 058
  2. ZYRTEC ALLERGY [Concomitant]
     Dosage: 10 MG, UNK
  3. METHOTREXATE [Concomitant]
     Dosage: 2.5 MG, UNK
  4. ZANTAC 75 DISSOLVE [Concomitant]
     Dosage: UNK
  5. VITAMIN D3 [Concomitant]
     Dosage: 5000 UNIT, UNK
  6. ADVIL                              /00109201/ [Concomitant]
     Dosage: 200 MG, UNK
  7. VITAMIN B-12 [Concomitant]
     Dosage: 500 MUG, UNK

REACTIONS (2)
  - Sneezing [Unknown]
  - Platelet count decreased [Unknown]
